FAERS Safety Report 7286699-3 (Version None)
Quarter: 2011Q1

REPORT INFORMATION
  Report Type: 
  Country: None (occurrence: None)
  Receive Date: 20110210
  Receipt Date: 20110201
  Transmission Date: 20110831
  Serious: Yes (Hospitalization)
  Sender: FDA-Public Use
  Company Number: US-ELI_LILLY_AND_COMPANY-US201102000594

PATIENT
  Sex: Female

DRUGS (9)
  1. METFORMIN [Concomitant]
  2. PLAVIX [Concomitant]
  3. LANTUS [Concomitant]
  4. SIMVASTATIN [Concomitant]
  5. DIOVAN [Concomitant]
  6. RANITIDINE [Concomitant]
  7. FORTEO [Suspect]
     Indication: OSTEOPOROSIS
     Dosage: 20 UG, DAILY (1/D)
     Dates: start: 20100919
  8. VIOKASE 16 [Concomitant]
  9. FORTEO [Suspect]
     Dosage: 20 UG, DAILY (1/D)

REACTIONS (3)
  - WHITE BLOOD CELL COUNT INCREASED [None]
  - ABDOMINAL PAIN UPPER [None]
  - DRUG DOSE OMISSION [None]
